FAERS Safety Report 7679470-1 (Version None)
Quarter: 2011Q3

REPORT INFORMATION
  Report Type: 
  Country: None (occurrence: None)
  Receive Date: 20110812
  Receipt Date: 20110812
  Transmission Date: 20111222
  Serious: No
  Sender: FDA-Public Use
  Company Number: None

PATIENT
  Age: 63 Year
  Sex: Male
  Weight: 72.574 kg

DRUGS (1)
  1. ERYTHROMYCIN [Suspect]
     Indication: BACTERIAL INFECTION
     Dosage: 2% SWABS
     Dates: start: 20110811, end: 20110811

REACTIONS (4)
  - PAIN IN EXTREMITY [None]
  - ERYTHEMA [None]
  - PARAESTHESIA [None]
  - FATIGUE [None]
